FAERS Safety Report 4808629-3 (Version None)
Quarter: 2005Q4

REPORT INFORMATION
  Report Type: 
  Country: None (occurrence: None)
  Receive Date: 20051021
  Receipt Date: 20050221
  Transmission Date: 20060501
  Serious: Yes (Disabling)
  Sender: FDA-Public Use
  Company Number: DE_050215290

PATIENT
  Age: 40 Year
  Sex: Male

DRUGS (3)
  1. ZYPREXA [Suspect]
     Indication: SCHIZOAFFECTIVE DISORDER
     Dosage: 20 MG DAY
     Dates: start: 20030825
  2. FLUANXOL (FLUPENTIXOL DECANOATE) [Concomitant]
  3. ORFIRIL (VALPROIC ACID) [Concomitant]

REACTIONS (3)
  - DRUG INTERACTION [None]
  - TARDIVE DYSKINESIA [None]
  - THROMBOCYTOPENIA [None]
